FAERS Safety Report 4788147-1 (Version None)
Quarter: 2005Q4

REPORT INFORMATION
  Report Type: 
  Country: None (occurrence: None)
  Receive Date: 20051005
  Receipt Date: 20050926
  Transmission Date: 20060501
  Serious: Yes (Other)
  Sender: FDA-Public Use
  Company Number: US-JNJFOC-20050901176

PATIENT
  Age: 10 Year
  Sex: Male
  Weight: 34 kg

DRUGS (6)
  1. CONCERTA [Suspect]
     Route: 048
  2. CONCERTA [Suspect]
     Indication: ATTENTION DEFICIT/HYPERACTIVITY DISORDER
     Route: 048
  3. ADDERALL XR 15 [Suspect]
     Route: 048
  4. ADDERALL XR 15 [Suspect]
     Route: 048
  5. ADDERALL XR 15 [Suspect]
     Route: 048
  6. ADDERALL XR 20 [Suspect]
     Route: 048

REACTIONS (1)
  - GLAUCOMA [None]
